FAERS Safety Report 24706370 (Version 3)
Quarter: 2025Q2

REPORT INFORMATION
  Report Type: Spontaneous
  Country: IT (occurrence: IT)
  Receive Date: 20241206
  Receipt Date: 20250630
  Transmission Date: 20250716
  Serious: Yes (Other)
  Sender: MYLAN
  Company Number: IT-HALEON-2209238

PATIENT
  Sex: Male
  Weight: 2.49 kg

DRUGS (56)
  1. ACETAMINOPHEN [Suspect]
     Active Substance: ACETAMINOPHEN
     Indication: Product used for unknown indication
  2. ACETAMINOPHEN [Suspect]
     Active Substance: ACETAMINOPHEN
  3. ACETAMINOPHEN [Suspect]
     Active Substance: ACETAMINOPHEN
     Route: 065
  4. ACETAMINOPHEN [Suspect]
     Active Substance: ACETAMINOPHEN
     Route: 065
  5. ACETAMINOPHEN [Suspect]
     Active Substance: ACETAMINOPHEN
  6. ACETAMINOPHEN [Suspect]
     Active Substance: ACETAMINOPHEN
  7. ACETAMINOPHEN [Suspect]
     Active Substance: ACETAMINOPHEN
     Route: 065
  8. ACETAMINOPHEN [Suspect]
     Active Substance: ACETAMINOPHEN
     Route: 065
  9. AMPICILLIN [Suspect]
     Active Substance: AMPICILLIN
     Indication: Product used for unknown indication
     Dosage: 1.5 GRAM, Q6H (1.5 G EVERY 6 H)
  10. AMPICILLIN [Suspect]
     Active Substance: AMPICILLIN
     Dosage: 1.5 GRAM, Q6H (1.5 G EVERY 6 H)
  11. AMPICILLIN [Suspect]
     Active Substance: AMPICILLIN
     Dosage: 1.5 GRAM, Q6H (1.5 G EVERY 6 H)
     Route: 064
  12. AMPICILLIN [Suspect]
     Active Substance: AMPICILLIN
     Dosage: 1.5 GRAM, Q6H (1.5 G EVERY 6 H)
     Route: 064
  13. AMPICILLIN [Suspect]
     Active Substance: AMPICILLIN
     Dosage: 1.5 GRAM, Q6H (1.5 G EVERY 6 H)
  14. AMPICILLIN [Suspect]
     Active Substance: AMPICILLIN
     Dosage: 1.5 GRAM, Q6H (1.5 G EVERY 6 H)
  15. AMPICILLIN [Suspect]
     Active Substance: AMPICILLIN
     Dosage: 1.5 GRAM, Q6H (1.5 G EVERY 6 H)
     Route: 064
  16. AMPICILLIN [Suspect]
     Active Substance: AMPICILLIN
     Dosage: 1.5 GRAM, Q6H (1.5 G EVERY 6 H)
     Route: 064
  17. AMPICILLIN [Suspect]
     Active Substance: AMPICILLIN
     Dosage: 3 GRAM, Q6H (3 G EVERY 6 H)
  18. AMPICILLIN [Suspect]
     Active Substance: AMPICILLIN
     Dosage: 3 GRAM, Q6H (3 G EVERY 6 H)
     Route: 064
  19. AMPICILLIN [Suspect]
     Active Substance: AMPICILLIN
     Dosage: 3 GRAM, Q6H (3 G EVERY 6 H)
  20. AMPICILLIN [Suspect]
     Active Substance: AMPICILLIN
     Dosage: 3 GRAM, Q6H (3 G EVERY 6 H)
  21. AMPICILLIN [Suspect]
     Active Substance: AMPICILLIN
     Dosage: 3 GRAM, Q6H (3 G EVERY 6 H)
     Route: 064
  22. AMPICILLIN [Suspect]
     Active Substance: AMPICILLIN
     Dosage: 3 GRAM, Q6H (3 G EVERY 6 H)
     Route: 064
  23. AMPICILLIN [Suspect]
     Active Substance: AMPICILLIN
     Dosage: 3 GRAM, Q6H (3 G EVERY 6 H)
  24. AMPICILLIN [Suspect]
     Active Substance: AMPICILLIN
     Dosage: 3 GRAM, Q6H (3 G EVERY 6 H)
     Route: 064
  25. GENTAMICIN [Suspect]
     Active Substance: GENTAMICIN
     Indication: Product used for unknown indication
     Dosage: 80 MILLIGRAM, Q6H (80 MG EVERY 6 H)
  26. GENTAMICIN [Suspect]
     Active Substance: GENTAMICIN
     Dosage: 80 MILLIGRAM, Q6H (80 MG EVERY 6 H)
  27. GENTAMICIN [Suspect]
     Active Substance: GENTAMICIN
     Dosage: 80 MILLIGRAM, Q6H (80 MG EVERY 6 H)
     Route: 064
  28. GENTAMICIN [Suspect]
     Active Substance: GENTAMICIN
     Dosage: 80 MILLIGRAM, Q6H (80 MG EVERY 6 H)
     Route: 064
  29. GENTAMICIN [Suspect]
     Active Substance: GENTAMICIN
     Dosage: 80 MILLIGRAM, Q6H (80 MG EVERY 6 H)
  30. GENTAMICIN [Suspect]
     Active Substance: GENTAMICIN
     Dosage: 80 MILLIGRAM, Q6H (80 MG EVERY 6 H)
  31. GENTAMICIN [Suspect]
     Active Substance: GENTAMICIN
     Dosage: 80 MILLIGRAM, Q6H (80 MG EVERY 6 H)
     Route: 064
  32. GENTAMICIN [Suspect]
     Active Substance: GENTAMICIN
     Dosage: 80 MILLIGRAM, Q6H (80 MG EVERY 6 H)
     Route: 064
  33. FERRIC CARBOXYMALTOSE [Suspect]
     Active Substance: FERRIC CARBOXYMALTOSE
     Indication: Anaemia
  34. FERRIC CARBOXYMALTOSE [Suspect]
     Active Substance: FERRIC CARBOXYMALTOSE
  35. FERRIC CARBOXYMALTOSE [Suspect]
     Active Substance: FERRIC CARBOXYMALTOSE
     Route: 064
  36. FERRIC CARBOXYMALTOSE [Suspect]
     Active Substance: FERRIC CARBOXYMALTOSE
     Route: 064
  37. FERRIC CARBOXYMALTOSE [Suspect]
     Active Substance: FERRIC CARBOXYMALTOSE
  38. FERRIC CARBOXYMALTOSE [Suspect]
     Active Substance: FERRIC CARBOXYMALTOSE
  39. FERRIC CARBOXYMALTOSE [Suspect]
     Active Substance: FERRIC CARBOXYMALTOSE
     Route: 064
  40. FERRIC CARBOXYMALTOSE [Suspect]
     Active Substance: FERRIC CARBOXYMALTOSE
     Route: 064
  41. ACETAMINOPHEN [Suspect]
     Active Substance: ACETAMINOPHEN
     Indication: Pyrexia
  42. ACETAMINOPHEN [Suspect]
     Active Substance: ACETAMINOPHEN
  43. ACETAMINOPHEN [Suspect]
     Active Substance: ACETAMINOPHEN
     Route: 064
  44. ACETAMINOPHEN [Suspect]
     Active Substance: ACETAMINOPHEN
     Route: 064
  45. ACETAMINOPHEN [Suspect]
     Active Substance: ACETAMINOPHEN
  46. ACETAMINOPHEN [Suspect]
     Active Substance: ACETAMINOPHEN
  47. ACETAMINOPHEN [Suspect]
     Active Substance: ACETAMINOPHEN
     Route: 064
  48. ACETAMINOPHEN [Suspect]
     Active Substance: ACETAMINOPHEN
     Route: 064
  49. IMIPENEM [Suspect]
     Active Substance: IMIPENEM
     Indication: Pyrexia
  50. IMIPENEM [Suspect]
     Active Substance: IMIPENEM
  51. IMIPENEM [Suspect]
     Active Substance: IMIPENEM
     Route: 064
  52. IMIPENEM [Suspect]
     Active Substance: IMIPENEM
     Route: 064
  53. IMIPENEM [Suspect]
     Active Substance: IMIPENEM
  54. IMIPENEM [Suspect]
     Active Substance: IMIPENEM
  55. IMIPENEM [Suspect]
     Active Substance: IMIPENEM
     Route: 064
  56. IMIPENEM [Suspect]
     Active Substance: IMIPENEM
     Route: 064

REACTIONS (8)
  - Neonatal respiratory distress syndrome [Recovered/Resolved]
  - Opisthotonus [Recovered/Resolved]
  - Premature baby [Unknown]
  - Condition aggravated [Recovered/Resolved]
  - Irritability [Recovered/Resolved]
  - Vasculitis [Recovered/Resolved]
  - Atrial septal defect [Recovered/Resolved]
  - Foetal exposure during pregnancy [Unknown]
